FAERS Safety Report 8973479 (Version 1)
Quarter: 2012Q4

REPORT INFORMATION
  Report Type: 
  Country: US (occurrence: US)
  Receive Date: 20121218
  Receipt Date: 20121218
  Transmission Date: 20130627
  Serious: Yes (Other)
  Sender: FDA-Public Use
  Company Number: US-BRISTOL-MYERS SQUIBB COMPANY-16819922

PATIENT
  Age: 34 Year
  Sex: Male
  Weight: 91 kg

DRUGS (4)
  1. ABILIFY [Suspect]
     Indication: ANXIETY
     Dosage: 90 count
  2. ABILIFY [Suspect]
     Indication: SCHIZOPHRENIA
     Dosage: 90 count
  3. EFFEXOR XR [Concomitant]
  4. METFORMIN [Concomitant]

REACTIONS (1)
  - Diabetes mellitus [Unknown]
